FAERS Safety Report 14604183 (Version 1)
Quarter: 2018Q1

REPORT INFORMATION
  Report Type: Spontaneous
  Country: US (occurrence: US)
  Receive Date: 20180305
  Receipt Date: 20180305
  Transmission Date: 20180509
  Serious: Yes (Hospitalization)
  Sender: FDA-Public Use
  Company Number: None

PATIENT
  Age: 74 Year
  Sex: Male
  Weight: 119.25 kg

DRUGS (3)
  1. CALCIUM/VITAMIN D3 [Concomitant]
  2. FISH OIL [Concomitant]
     Active Substance: FISH OIL
  3. CIPROFLOXACIN. [Suspect]
     Active Substance: CIPROFLOXACIN
     Indication: URINARY TRACT INFECTION
     Dosage: ?          QUANTITY:14 TABLET(S);?
     Route: 048

REACTIONS (2)
  - Asthenia [None]
  - Dysstasia [None]

NARRATIVE: CASE EVENT DATE: 20180224
